FAERS Safety Report 9269203 (Version 2)
Quarter: 2013Q2

REPORT INFORMATION
  Report Type: Spontaneous
  Country: US (occurrence: US)
  Receive Date: 20130503
  Receipt Date: 20130509
  Transmission Date: 20140414
  Serious: No
  Sender: FDA-Public Use
  Company Number: US-PFIZER INC-2013133603

PATIENT
  Sex: Male

DRUGS (1)
  1. XYNTHA SOLOFUSE [Suspect]
     Indication: FACTOR VIII DEFICIENCY
     Dosage: UNK
     Dates: start: 2013, end: 2013

REACTIONS (1)
  - Rash [Recovered/Resolved]
